FAERS Safety Report 22187052 (Version 1)
Quarter: 2023Q2

REPORT INFORMATION
  Report Type: Spontaneous
  Country: US (occurrence: US)
  Receive Date: 20230407
  Receipt Date: 20230407
  Transmission Date: 20230721
  Serious: No
  Sender: FDA-Public Use
  Company Number: US-PFIZER INC-202300144927

PATIENT
  Sex: Female

DRUGS (2)
  1. NURTEC ODT [Suspect]
     Active Substance: RIMEGEPANT SULFATE
     Dosage: 2 DF, 1X/DAY, (PATIENT TOOK 2 PILLS YESTERDAY)
     Dates: start: 20230403
  2. NURTEC ODT [Suspect]
     Active Substance: RIMEGEPANT SULFATE
     Dosage: 1 DF, (TOOK 1 THIS MORNING)
     Dates: start: 20230404

REACTIONS (5)
  - Prescribed overdose [Unknown]
  - Off label use [Unknown]
  - Migraine [Unknown]
  - Nausea [Unknown]
  - Somnolence [Unknown]

NARRATIVE: CASE EVENT DATE: 20230403
